FAERS Safety Report 6962423-6 (Version None)
Quarter: 2010Q3

REPORT INFORMATION
  Report Type: 
  Country: None (occurrence: None)
  Receive Date: 20100823
  Receipt Date: 20100715
  Transmission Date: 20110219
  Serious: Yes (Other)
  Sender: FDA-Public Use
  Company Number: 015754

PATIENT
  Sex: Female
  Weight: 82.5 kg

DRUGS (6)
  1. CIMZIA [Suspect]
     Indication: RHEUMATOID ARTHRITIS
     Dosage: (400 MG 1X/MONTH SUBCUTANEOUS)
     Route: 058
     Dates: start: 20100630
  2. OMEPRAZOLE [Concomitant]
  3. PERCOCET [Concomitant]
  4. LEVOTHYROXINE SODIUM [Concomitant]
  5. ASPIRN /00002701/ [Concomitant]
  6. COUMADIN [Concomitant]

REACTIONS (1)
  - EYE SWELLING [None]
